FAERS Safety Report 17893402 (Version 2)
Quarter: 2020Q2

REPORT INFORMATION
  Report Type: Report from Study
  Country: None (occurrence: US)
  Receive Date: 20200615
  Receipt Date: 20200630
  Transmission Date: 20200714
  Serious: Yes (Hospitalization, Other)
  Sender: FDA-Public Use
  Company Number: US-ABBVIE-20K-163-3395741-00

PATIENT
  Age: 61 Year
  Sex: Female
  Weight: 68.1 kg

DRUGS (3)
  1. HUMIRA [Suspect]
     Active Substance: ADALIMUMAB
     Indication: RHEUMATOID ARTHRITIS
     Dosage: CITRATE FREE
     Route: 058
     Dates: start: 2005
  2. METHOTREXATE. [Concomitant]
     Active Substance: METHOTREXATE
     Indication: ARTHRITIS
  3. TRAMADOL. [Concomitant]
     Active Substance: TRAMADOL
     Indication: PAIN

REACTIONS (9)
  - Cystitis [Unknown]
  - Dysstasia [Recovering/Resolving]
  - Uterine prolapse [Unknown]
  - Malaise [Recovering/Resolving]
  - Osteoarthritis [Recovered/Resolved]
  - Knee operation [Recovering/Resolving]
  - Knee operation [Recovering/Resolving]
  - Shoulder arthroplasty [Recovering/Resolving]
  - Joint arthroplasty [Recovering/Resolving]

NARRATIVE: CASE EVENT DATE: 200705
